FAERS Safety Report 17544418 (Version 2)
Quarter: 2020Q2

REPORT INFORMATION
  Report Type: Spontaneous
  Country: US (occurrence: US)
  Receive Date: 20200316
  Receipt Date: 20200414
  Transmission Date: 20200713
  Serious: Yes (Hospitalization, Other)
  Sender: FDA-Public Use
  Company Number: US-VERASTEM-2020-00050

PATIENT

DRUGS (1)
  1. COPIKTRA [Suspect]
     Active Substance: DUVELISIB
     Indication: B-CELL LYMPHOMA
     Dosage: 25 MG, BID
     Route: 048

REACTIONS (1)
  - Influenza [Recovered/Resolved]

NARRATIVE: CASE EVENT DATE: 202002
